FAERS Safety Report 24019961 (Version 1)
Quarter: 2024Q2

REPORT INFORMATION
  Report Type: Spontaneous
  Country: US (occurrence: None)
  Receive Date: 20240627
  Receipt Date: 20240627
  Transmission Date: 20240716
  Serious: Yes (Hospitalization)
  Sender: FDA-Public Use
  Company Number: None

PATIENT
  Sex: Female
  Weight: 57.2 kg

DRUGS (3)
  1. CYCLOPHOSPHAMIDE [Suspect]
     Active Substance: CYCLOPHOSPHAMIDE
     Dates: end: 20240613
  2. DACTINOMYCIN [Concomitant]
     Active Substance: DACTINOMYCIN
  3. VINCRISTINE SULFATE [Concomitant]
     Active Substance: VINCRISTINE SULFATE

REACTIONS (5)
  - Thrombocytopenia [None]
  - Hyperbilirubinaemia [None]
  - Hypertransaminasaemia [None]
  - Abdominal pain [None]
  - Venoocclusive liver disease [None]

NARRATIVE: CASE EVENT DATE: 20240623
